FAERS Safety Report 4284721-X (Version None)
Quarter: 2004Q1

REPORT INFORMATION
  Report Type: 
  Country: None (occurrence: None)
  Receive Date: 20040203
  Receipt Date: 20040128
  Transmission Date: 20041129
  Serious: Yes (Death)
  Sender: FDA-Public Use
  Company Number: 04-01-0133

PATIENT
  Age: 67 Year
  Sex: Female

DRUGS (1)
  1. CLOZAPINE [Suspect]
     Indication: SCHIZOPHRENIA, PARANOID TYPE
     Dosage: 500-600 MG QD ORAL
     Route: 048
     Dates: start: 19980901, end: 20031201

REACTIONS (2)
  - BREAST CANCER METASTATIC [None]
  - METASTASES TO LUNG [None]
